FAERS Safety Report 21124264 (Version 1)
Quarter: 2022Q3

REPORT INFORMATION
  Report Type: Spontaneous
  Country: DE (occurrence: ES)
  Receive Date: 20220725
  Receipt Date: 20220725
  Transmission Date: 20221027
  Serious: Yes (Hospitalization, Other)
  Sender: FDA-Public Use
  Company Number: None

PATIENT
  Age: 55 Year
  Sex: Female
  Weight: 55 kg

DRUGS (3)
  1. SELENIUM SULFIDE [Suspect]
     Active Substance: SELENIUM SULFIDE
     Indication: Drug therapy
     Dosage: UNK
     Route: 042
     Dates: start: 20220426, end: 20220426
  2. SELENIUM SULFIDE [Suspect]
     Active Substance: SELENIUM SULFIDE
     Indication: Asthenia
  3. VITAMIN C [Concomitant]
     Active Substance: ASCORBIC ACID
     Indication: Asthenia
     Dosage: UNK
     Route: 042
     Dates: start: 20220426

REACTIONS (25)
  - Visual impairment [Not Recovered/Not Resolved]
  - Pustule [Not Recovered/Not Resolved]
  - Fatigue [Recovered/Resolved]
  - Taste disorder [Not Recovered/Not Resolved]
  - Breath odour [Recovered/Resolved]
  - Loss of consciousness [Recovered/Resolved]
  - Gingival bleeding [Not Recovered/Not Resolved]
  - Pain in extremity [Not Recovered/Not Resolved]
  - Retching [Recovered/Resolved]
  - Parosmia [Not Recovered/Not Resolved]
  - Acne [Not Recovered/Not Resolved]
  - Limb discomfort [Not Recovered/Not Resolved]
  - Abdominal pain upper [Recovered/Resolved]
  - Vomiting [Recovered/Resolved]
  - Oesophageal pain [Recovered/Resolved]
  - Skin odour abnormal [Recovered/Resolved]
  - Toxicity to various agents [Recovering/Resolving]
  - Anxiety [Unknown]
  - Purulence [Not Recovered/Not Resolved]
  - Abdominal pain upper [Not Recovered/Not Resolved]
  - Nausea [Recovered/Resolved]
  - Urine odour abnormal [Not Recovered/Not Resolved]
  - Hypophagia [Not Recovered/Not Resolved]
  - Medication error [Unknown]
  - Product quality issue [Unknown]

NARRATIVE: CASE EVENT DATE: 20220426
